FAERS Safety Report 13496370 (Version 1)
Quarter: 2017Q2

REPORT INFORMATION
  Report Type: Spontaneous
  Country: US (occurrence: US)
  Receive Date: 20170428
  Receipt Date: 20170428
  Transmission Date: 20170830
  Serious: Yes (Disabling)
  Sender: FDA-Public Use
  Company Number: None

PATIENT
  Age: 44 Year
  Sex: Male
  Weight: 90 kg

DRUGS (7)
  1. LEXAPRO [Concomitant]
     Active Substance: ESCITALOPRAM OXALATE
  2. NORVASC [Concomitant]
     Active Substance: AMLODIPINE BESYLATE
  3. NASONEX [Concomitant]
     Active Substance: MOMETASONE FUROATE
  4. LUNESTA [Concomitant]
     Active Substance: ESZOPICLONE
  5. SYMBICORT [Concomitant]
     Active Substance: BUDESONIDE\FORMOTEROL FUMARATE DIHYDRATE
  6. PROVENTIL [Concomitant]
     Active Substance: ALBUTEROL
  7. SYMBICORT [Suspect]
     Active Substance: BUDESONIDE\FORMOTEROL FUMARATE DIHYDRATE
     Indication: ASTHMA
     Dosage: QUANTITY:1 PUFF(S);?
     Route: 055

REACTIONS (1)
  - Glaucoma [None]

NARRATIVE: CASE EVENT DATE: 20170222
